FAERS Safety Report 17516313 (Version 1)
Quarter: 2020Q1

REPORT INFORMATION
  Report Type: Spontaneous
  Country: IT (occurrence: IT)
  Receive Date: 20200309
  Receipt Date: 20200309
  Transmission Date: 20200409
  Serious: Yes (Other)
  Sender: FDA-Public Use
  Company Number: IT-MYLANLABS-2020M1025277

PATIENT
  Age: 64 Year
  Sex: Female

DRUGS (1)
  1. EPIRUBICIN [Suspect]
     Active Substance: EPIRUBICIN
     Indication: ENDOMETRIAL CANCER STAGE III
     Dosage: UNK, RECEIVED THREE CYCLES
     Route: 065

REACTIONS (1)
  - Drug ineffective [Unknown]
